FAERS Safety Report 5630279-X (Version None)
Quarter: 2008Q1

REPORT INFORMATION
  Report Type: 
  Country: None (occurrence: None)
  Receive Date: 20080219
  Receipt Date: 20080214
  Transmission Date: 20080703
  Serious: Yes (Disabling, Other)
  Sender: FDA-Public Use
  Company Number: DE-BAYER-200711224BVD

PATIENT
  Age: 68 Year
  Sex: Female

DRUGS (1)
  1. CIPRO [Suspect]
     Indication: URINARY TRACT INFECTION
     Dosage: TOTAL DAILY DOSE: 500 MG
     Route: 048
     Dates: start: 20071105, end: 20071106

REACTIONS (6)
  - ABASIA [None]
  - MUSCULOSKELETAL DISORDER [None]
  - MYALGIA [None]
  - NAUSEA [None]
  - PAIN [None]
  - PRURITUS GENERALISED [None]
